FAERS Safety Report 7714805-2 (Version None)
Quarter: 2011Q3

REPORT INFORMATION
  Report Type: 
  Country: None (occurrence: None)
  Receive Date: 20110822
  Receipt Date: 20110805
  Transmission Date: 20111222
  Serious: Yes (Hospitalization)
  Sender: FDA-Public Use
  Company Number: 2011MA011405

PATIENT
  Age: 67 Year
  Sex: Female

DRUGS (7)
  1. RISPERIDONE [Suspect]
     Indication: DEPRESSION
     Dosage: 0.5 MG;BID;
  2. HYDROCHLOROTHIAZIDE [Concomitant]
  3. ROSUVASTATIN [Concomitant]
  4. CLONAZEPAM [Suspect]
     Indication: DEPRESSION
  5. PAROXETINE HCL [Concomitant]
  6. LISINOPRIL [Concomitant]
  7. ESCITALOPRAM [Suspect]
     Indication: DEPRESSION

REACTIONS (4)
  - DRUG INEFFECTIVE [None]
  - PARKINSONISM [None]
  - SOMATIC DELUSION [None]
  - DEPRESSION [None]
